FAERS Safety Report 7307316-X (Version None)
Quarter: 2011Q1

REPORT INFORMATION
  Report Type: 
  Country: None (occurrence: None)
  Receive Date: 20110223
  Receipt Date: 20110217
  Transmission Date: 20110831
  Serious: Yes (Hospitalization)
  Sender: FDA-Public Use
  Company Number: DE-AMGEN-DEUSP2011002665

PATIENT
  Age: 82 Year
  Sex: Female
  Weight: 55.1 kg

DRUGS (9)
  1. ASS-RATIOPHARM [Concomitant]
  2. INSIDON [Concomitant]
     Dosage: 100 MG, QD
  3. RAMIPRIL [Concomitant]
     Dosage: 5 MG, BID
  4. PROLIA [Suspect]
     Indication: OSTEOPOROSIS
     Dosage: 60 MG, ONE TIME DOSE
     Route: 058
     Dates: start: 20100823
  5. PANTOPRAZOL                        /01263202/ [Concomitant]
     Dosage: 40 MG, QD
  6. VISKEN [Concomitant]
     Dosage: 5 MG, BID
  7. TRAMADOLOR ID [Concomitant]
     Dosage: UNK UNK, QD
  8. BEZAFIBRAT [Concomitant]
     Dosage: 200 MG, QD
  9. DEKRISTOL [Concomitant]
     Dosage: 20000 IU, UNK

REACTIONS (7)
  - DECREASED APPETITE [None]
  - HEADACHE [None]
  - TRANSIENT ISCHAEMIC ATTACK [None]
  - DISORIENTATION [None]
  - NAUSEA [None]
  - DIZZINESS [None]
  - WEIGHT DECREASED [None]
